FAERS Safety Report 20548949 (Version 1)
Quarter: 2022Q1

REPORT INFORMATION
  Report Type: Report from Study
  Country: CA (occurrence: None)
  Receive Date: 20220303
  Receipt Date: 20220303
  Transmission Date: 20220424
  Serious: Yes (Hospitalization)
  Sender: FDA-Public Use
  Company Number: 2022A091116

PATIENT
  Sex: Female

DRUGS (3)
  1. FASENRA [Suspect]
     Active Substance: BENRALIZUMAB
     Indication: Asthma
     Route: 058
     Dates: start: 20220203
  2. SYMBICORT [Concomitant]
     Active Substance: BUDESONIDE\FORMOTEROL FUMARATE DIHYDRATE
     Dosage: 2 PUFF TWICE DAILY
  3. ALVESCO [Concomitant]
     Active Substance: CICLESONIDE
     Dosage: 1 PUFF TWICE DAILY

REACTIONS (4)
  - Malaise [Unknown]
  - Disturbance in attention [Unknown]
  - Blood electrolytes decreased [Unknown]
  - Hormone level abnormal [Unknown]
